FAERS Safety Report 9633132 (Version 1)
Quarter: 2013Q4

REPORT INFORMATION
  Report Type: Spontaneous
  Country: FR (occurrence: FR)
  Receive Date: 20131019
  Receipt Date: 20131019
  Transmission Date: 20140711
  Serious: Yes (Hospitalization)
  Sender: FDA-Public Use
  Company Number: FR-B.I. PHARMACEUTICALS,INC./RIDGEFIELD-2013-BI-33038BY

PATIENT
  Age: 86 Year
  Sex: Female

DRUGS (15)
  1. TELMISARTAN + HYDROCHLOROTHIAZIDE [Suspect]
     Dosage: DAILY DOSE: 80/12.5 1 DF
     Route: 048
     Dates: start: 2005, end: 20130318
  2. LASILIX [Suspect]
     Dosage: 20 MG
     Route: 048
     Dates: start: 2005, end: 20130317
  3. SEROPLEX [Suspect]
     Dosage: 5 MG
     Route: 048
     Dates: start: 20130313, end: 20130318
  4. MINISINTROM (ACENOCOUMAROL) [Concomitant]
     Dates: start: 20120417
  5. IKOREL (NICORANDIL) [Concomitant]
     Dates: start: 2008, end: 20130318
  6. TEMERIT (NEBIVOLOL) [Concomitant]
     Dates: start: 20120417
  7. KALEORID (POTASSIUM CHLORIDE) [Concomitant]
     Dates: start: 20130116
  8. MONURIL (FOSFOMYCIN TROMETAMOL) [Concomitant]
     Dates: start: 20120417
  9. PENTASA (MESALAZINE) [Concomitant]
     Dates: start: 2009
  10. REQUIP (ROPINIROLE HYDROCHLORIDE) [Concomitant]
     Dates: start: 20120417
  11. OROKEN (CEFIXIME) [Concomitant]
     Dates: start: 20130307, end: 20130315
  12. LACTULOSE (LACTULOSE) [Concomitant]
  13. DAFALGAN (PARACETAMOL) [Concomitant]
  14. LACTULOSE (LACTULOSE) [Concomitant]
  15. AERIUS (DESLORATADINE) [Concomitant]

REACTIONS (2)
  - Hyponatraemia [Recovered/Resolved]
  - Fall [Recovered/Resolved]
